FAERS Safety Report 6379474-5 (Version None)
Quarter: 2009Q3

REPORT INFORMATION
  Report Type: 
  Country: None (occurrence: None)
  Receive Date: 20090928
  Receipt Date: 20090922
  Transmission Date: 20100115
  Serious: Yes (Hospitalization)
  Sender: FDA-Public Use
  Company Number: B0594755A

PATIENT
  Sex: Female

DRUGS (5)
  1. TOPOTECAN [Suspect]
     Indication: CERVIX CARCINOMA
     Dosage: 3.2MG CYCLIC
     Route: 042
     Dates: start: 20090826
  2. PACLITAXEL [Suspect]
     Indication: CERVIX CARCINOMA
     Dosage: 128MG CYCLIC
     Route: 042
     Dates: start: 20090826
  3. HEPARIN [Concomitant]
     Dosage: 12500UNIT TWICE PER DAY
     Route: 058
     Dates: start: 20090908
  4. BUSCOPAN [Concomitant]
     Dosage: 10MG PER DAY
     Route: 048
     Dates: start: 20090908
  5. RED BLOOD CELLS [Concomitant]
     Dosage: 2UNIT PER DAY
     Route: 042
     Dates: start: 20090913, end: 20090913

REACTIONS (1)
  - DYSPNOEA [None]
